FAERS Safety Report 9337139 (Version 1)
Quarter: 2013Q2

REPORT INFORMATION
  Report Type: Spontaneous
  Country: AU (occurrence: AU)
  Receive Date: 20130607
  Receipt Date: 20130607
  Transmission Date: 20140414
  Serious: Yes (Death, Other)
  Sender: FDA-Public Use
  Company Number: AU-PFIZER INC-2013171200

PATIENT
  Age: 52 Year
  Sex: Female

DRUGS (9)
  1. METHOTREXATE SODIUM [Suspect]
     Indication: CENTRAL NERVOUS SYSTEM LYMPHOMA
     Dosage: 1G/M2; TOTAL DOSE 1600MG OVER 2 HOURS EVERY 2 WEEKS
     Route: 042
  2. DEXAMETHASONE SODIUM PHOSPHATE [Suspect]
  3. CYTARABINE [Suspect]
     Dosage: 100MG
     Route: 037
  4. RITUXIMAB [Suspect]
     Dosage: 375 MG/M2, WEEKLY X 8
     Route: 042
  5. LEUCOVORIN [Concomitant]
     Dosage: 60MG IV 12 HOURS AFTER MTX INFUSION
  6. LEUCOVORIN [Concomitant]
     Dosage: 50MG IV Q6H X 2
  7. LEUCOVORIN [Concomitant]
     Dosage: 200MG IV Q4H X 12 DOSES
     Route: 042
  8. LEUCOVORIN [Concomitant]
     Dosage: 50MG IV Q6H X 15
  9. LEUCOVORIN [Concomitant]
     Dosage: 200MG IV Q6H X 10 DOSES

REACTIONS (12)
  - Immunosuppression [Fatal]
  - Anaemia [Not Recovered/Not Resolved]
  - Neutropenia [Recovered/Resolved]
  - Thrombocytopenia [Unknown]
  - Diarrhoea [Unknown]
  - Urinary tract infection [Recovered/Resolved]
  - Arteriovenous fistula site infection [Recovered/Resolved]
  - Enterococcal infection [Recovered/Resolved]
  - Endocarditis [Recovered/Resolved]
  - Transaminases increased [Unknown]
  - Nausea [Unknown]
  - Stomatitis [Unknown]
